FAERS Safety Report 7777201-8 (Version None)
Quarter: 2011Q3

REPORT INFORMATION
  Report Type: 
  Country: None (occurrence: None)
  Receive Date: 20110926
  Receipt Date: 20110916
  Transmission Date: 20111222
  Serious: Yes (Other)
  Sender: FDA-Public Use
  Company Number: US-AMGEN-USASP2011048010

PATIENT
  Sex: Male

DRUGS (1)
  1. ENBREL [Suspect]
     Indication: PSORIATIC ARTHROPATHY
     Dosage: UNK

REACTIONS (5)
  - DEEP VEIN THROMBOSIS [None]
  - URINARY TRACT INFECTION [None]
  - PULMONARY EMBOLISM [None]
  - CYSTITIS [None]
  - EAR INFECTION [None]
